FAERS Safety Report 18975263 (Version 1)
Quarter: 2021Q1

REPORT INFORMATION
  Report Type: Spontaneous
  Country: JP (occurrence: JP)
  Receive Date: 20210305
  Receipt Date: 20210305
  Transmission Date: 20210420
  Serious: Yes (Hospitalization)
  Sender: FDA-Public Use
  Company Number: JP-PFIZER INC-2021212097

PATIENT
  Age: 64 Year
  Sex: Female

DRUGS (2)
  1. BRAFTOVI [Suspect]
     Active Substance: ENCORAFENIB
     Indication: MALIGNANT MELANOMA
     Dosage: UNK
     Route: 048
  2. MEKTOVI [Suspect]
     Active Substance: BINIMETINIB
     Indication: MALIGNANT MELANOMA
     Dosage: UNK
     Route: 048

REACTIONS (11)
  - Dehydration [Recovering/Resolving]
  - Aspartate aminotransferase increased [Recovering/Resolving]
  - Blood fibrinogen increased [Recovering/Resolving]
  - Fibrin D dimer increased [Recovering/Resolving]
  - Alanine aminotransferase increased [Recovering/Resolving]
  - Decreased appetite [Recovered/Resolved]
  - Pyrexia [Unknown]
  - Platelet count decreased [Recovering/Resolving]
  - Haemoglobin decreased [Unknown]
  - Hypercoagulation [Recovering/Resolving]
  - Prothrombin time shortened [Recovering/Resolving]

NARRATIVE: CASE EVENT DATE: 202102
